FAERS Safety Report 18220998 (Version 1)
Quarter: 2020Q3

REPORT INFORMATION
  Report Type: Spontaneous
  Country: US (occurrence: US)
  Receive Date: 20200901
  Receipt Date: 20200901
  Transmission Date: 20201103
  Serious: No
  Sender: FDA-Public Use
  Company Number: None

PATIENT
  Age: 56 Year
  Sex: Male
  Weight: 72.45 kg

DRUGS (2)
  1. NO OTHER MEDS [Concomitant]
  2. SUTENT [Suspect]
     Active Substance: SUNITINIB MALATE
     Indication: RENAL CANCER
     Dosage: ?          OTHER FREQUENCY:QD FOR 28/42 DAYS;?
     Route: 048
     Dates: start: 20200609

REACTIONS (2)
  - Periorbital disorder [None]
  - Skin discolouration [None]

NARRATIVE: CASE EVENT DATE: 20200901
